FAERS Safety Report 7787818-2 (Version None)
Quarter: 2011Q3

REPORT INFORMATION
  Report Type: 
  Country: None (occurrence: None)
  Receive Date: 20110930
  Receipt Date: 20110921
  Transmission Date: 20111222
  Serious: Yes (Hospitalization, Other)
  Sender: FDA-Public Use
  Company Number: US-BIOGENIDEC-2011BI036987

PATIENT
  Age: 33 Year
  Sex: Female
  Weight: 68 kg

DRUGS (8)
  1. CYMBALTA [Concomitant]
     Indication: ANXIETY
  2. PAMELOR [Concomitant]
     Indication: HEADACHE
  3. LYBREL [Concomitant]
     Indication: OBSESSIVE-COMPULSIVE DISORDER
  4. TREXIMET [Concomitant]
     Indication: MIGRAINE
  5. XANAX [Concomitant]
     Indication: ANXIETY
  6. ADDERALL 5 [Concomitant]
     Indication: FATIGUE
  7. TYSABRI [Suspect]
     Indication: MULTIPLE SCLEROSIS
     Route: 042
     Dates: start: 20080524
  8. EXCEDRIN (MIGRAINE) [Concomitant]
     Indication: MIGRAINE

REACTIONS (2)
  - URINARY TRACT INFECTION [None]
  - TONSILLITIS [None]
